FAERS Safety Report 12491992 (Version 1)
Quarter: 2016Q2

REPORT INFORMATION
  Report Type: Spontaneous
  Country: US (occurrence: US)
  Receive Date: 20160623
  Receipt Date: 20160623
  Transmission Date: 20160815
  Serious: Yes (Life-Threatening, Other)
  Sender: FDA-Public Use
  Company Number: US-ACTAVIS-2016-13133

PATIENT
  Age: 71 Year
  Sex: Female

DRUGS (2)
  1. SULFAMETHOXAZOLE/TRIMETHOPRIM UNKNOWN STRENGTH (WATSON LABORATORIES) [Suspect]
     Active Substance: SULFAMETHOXAZOLE\TRIMETHOPRIM
     Indication: KERATOACANTHOMA
     Dosage: 3 COURSE LASTING APPROXIMATELY 10 DAYS
     Route: 065
  2. DOXYCYCLINE (ACTAVIS LABORATORIES FL) [Suspect]
     Active Substance: DOXYCYCLINE
     Indication: KERATOACANTHOMA
     Dosage: 1 COURSE LASTING APPROXIMATELY 10 DAYS
     Route: 065

REACTIONS (1)
  - Drug ineffective [Unknown]
